FAERS Safety Report 9147915 (Version 1)
Quarter: 2013Q1

REPORT INFORMATION
  Report Type: Spontaneous
  Country: US (occurrence: US)
  Receive Date: 20130307
  Receipt Date: 20130307
  Transmission Date: 20140127
  Serious: No
  Sender: FDA-Public Use
  Company Number: US-009507513-1303USA001201

PATIENT
  Sex: Female

DRUGS (3)
  1. COSOPT [Suspect]
     Indication: GLAUCOMA
     Dosage: UNK
     Dates: start: 201208, end: 201301
  2. TIMOLOL [Concomitant]
  3. LATANOPROST [Concomitant]

REACTIONS (2)
  - Eye irritation [Unknown]
  - Vision blurred [Recovering/Resolving]
